FAERS Safety Report 15615219 (Version 2)
Quarter: 2018Q4

REPORT INFORMATION
  Report Type: Report from Study
  Country: None (occurrence: CO)
  Receive Date: 20181114
  Receipt Date: 20181222
  Transmission Date: 20190205
  Serious: Yes (Hospitalization, Other)
  Sender: FDA-Public Use
  Company Number: CO-ABBVIE-18K-036-2551748-00

PATIENT
  Sex: Female

DRUGS (5)
  1. METHOTREXATO [Suspect]
     Active Substance: METHOTREXATE
     Route: 065
     Dates: end: 201810
  2. METHOTREXATO [Suspect]
     Active Substance: METHOTREXATE
     Route: 065
     Dates: start: 2014
  3. HUMIRA [Suspect]
     Active Substance: ADALIMUMAB
     Indication: RHEUMATOID ARTHRITIS
     Dosage: HUMIRA AC
     Route: 058
     Dates: end: 20181016
  4. METHOTREXATO [Suspect]
     Active Substance: METHOTREXATE
     Indication: PRODUCT USED FOR UNKNOWN INDICATION
     Route: 065
  5. HUMIRA [Suspect]
     Active Substance: ADALIMUMAB
     Indication: RHEUMATOID ARTHRITIS
     Route: 058
     Dates: start: 20140520

REACTIONS (18)
  - Gastrooesophageal reflux disease [Recovering/Resolving]
  - Headache [Recovering/Resolving]
  - Abdominal pain upper [Recovering/Resolving]
  - Dyspepsia [Recovering/Resolving]
  - Rosacea [Recovering/Resolving]
  - Poisoning [Recovering/Resolving]
  - Influenza [Recovering/Resolving]
  - Ear pain [Unknown]
  - Abdominal distension [Recovering/Resolving]
  - Paranasal sinus discomfort [Unknown]
  - Blood glucose increased [Recovered/Resolved]
  - Malaise [Recovering/Resolving]
  - Odynophagia [Unknown]
  - Poisoning [Recovering/Resolving]
  - Bone pain [Recovering/Resolving]
  - Blood glucose increased [Unknown]
  - Hepatic steatosis [Recovering/Resolving]
  - Dizziness [Recovering/Resolving]

NARRATIVE: CASE EVENT DATE: 2014
